FAERS Safety Report 5747226-2 (Version None)
Quarter: 2008Q2

REPORT INFORMATION
  Report Type: 
  Country: None (occurrence: None)
  Receive Date: 20080520
  Receipt Date: 20080506
  Transmission Date: 20081010
  Serious: Yes (Hospitalization)
  Sender: FDA-Public Use
  Company Number: POMP-1000164

PATIENT
  Age: 6 Year
  Sex: Male
  Weight: 23 kg

DRUGS (2)
  1. MYOZYME [Suspect]
     Indication: GLYCOGEN STORAGE DISEASE TYPE II
     Dosage: 21.7 MG/KG, Q2W, INTRAVENOUS
     Route: 042
     Dates: start: 20051224
  2. FLUTICASONE W (FLUTICASONE, SALMETEROL) [Concomitant]

REACTIONS (3)
  - APPENDICITIS [None]
  - NO THERAPEUTIC RESPONSE [None]
  - PNEUMONIA [None]
